FAERS Safety Report 12744975 (Version 2)
Quarter: 2016Q4

REPORT INFORMATION
  Report Type: Report from Study
  Country: US (occurrence: US)
  Receive Date: 20160915
  Receipt Date: 20161223
  Transmission Date: 20170207
  Serious: Yes (Other)
  Sender: FDA-Public Use
  Company Number: PHEH2016US023149

PATIENT
  Age: 72 Year
  Sex: Female
  Weight: 46 kg

DRUGS (1)
  1. VOTRIENT [Suspect]
     Active Substance: PAZOPANIB HYDROCHLORIDE
     Indication: NEOPLASM MALIGNANT
     Dosage: 800 MG, QD
     Route: 048
     Dates: start: 20160606, end: 20160926

REACTIONS (3)
  - Malignant neoplasm progression [Unknown]
  - Red blood cell count decreased [Unknown]
  - Anaemia [Not Recovered/Not Resolved]

NARRATIVE: CASE EVENT DATE: 20161013
